FAERS Safety Report 8655469 (Version 5)
Quarter: 2012Q4

REPORT INFORMATION
  Report Type: 
  Country: FR (occurrence: FR)
  Receive Date: 20120709
  Receipt Date: 20121012
  Transmission Date: 20130627
  Serious: Yes (Life-Threatening, Hospitalization, Other)
  Sender: FDA-Public Use
  Company Number: FR-BAXTER-2012BAX009623

PATIENT
  Age: 64 Year
  Sex: Male
  Weight: 71 kg

DRUGS (11)
  1. KIOVIG [Suspect]
     Indication: HYPOGAMMAGLOBULINEMIA
     Route: 042
     Dates: start: 20120214, end: 20120214
  2. KIOVIG [Suspect]
     Dosage: ADMINISTRATION OF AROUND 200ML
     Route: 042
     Dates: start: 20120525, end: 20120525
  3. KIOVIG [Suspect]
     Route: 042
     Dates: start: 20120229, end: 20120229
  4. KIOVIG [Suspect]
     Route: 042
     Dates: start: 20120320, end: 20120320
  5. KIOVIG [Suspect]
     Route: 042
     Dates: start: 20120424, end: 20120424
  6. ZELITREX [Concomitant]
     Indication: DRUG USE FOR UNKNOWN INDICATION
     Dosage: DAILY
     Route: 048
  7. RULID [Concomitant]
     Indication: LUNG INFECTION
     Dosage: DAILY
     Route: 048
     Dates: start: 20120513, end: 20120525
  8. AMOXICILLIN [Concomitant]
     Indication: LUNG INFECTION
     Dosage: DAILY
     Route: 048
     Dates: start: 20120513, end: 20120525
  9. NOXAFIL [Concomitant]
     Indication: PULMONARY ASPERGILLOSIS
     Dosage: 3 TIMES DAILY
     Route: 048
     Dates: end: 20120525
  10. REVLIMID [Concomitant]
     Indication: DRUG USE FOR UNKNOWN INDICATION
     Dosage: ACCORDING TO CYCLE
     Route: 048
     Dates: start: 20120327, end: 20120525
  11. NEODEX [Concomitant]
     Indication: DRUG USE FOR UNKNOWN INDICATION
     Dosage: DEPENDING ON CYCLE
     Route: 048
     Dates: start: 20120327, end: 20120525

REACTIONS (4)
  - Acute pulmonary oedema [Recovered/Resolved]
  - Hypertension [Recovered/Resolved]
  - Plasma cell myeloma [Unknown]
  - Alpha-1 anti-trypsin increased [Unknown]
